FAERS Safety Report 6264101-8 (Version None)
Quarter: 2009Q3

REPORT INFORMATION
  Report Type: 
  Country: None (occurrence: None)
  Receive Date: 20090710
  Receipt Date: 20090630
  Transmission Date: 20100115
  Serious: Yes (Death, Other)
  Sender: FDA-Public Use
  Company Number: US-ELI_LILLY_AND_COMPANY-US200907000103

PATIENT
  Age: 78 Year
  Sex: Female

DRUGS (2)
  1. CYMBALTA [Suspect]
     Indication: HERPES ZOSTER
     Dosage: 20 MG, UNK
     Dates: start: 20090623
  2. NEURONTIN [Concomitant]

REACTIONS (2)
  - CARDIAC FAILURE [None]
  - OFF LABEL USE [None]
